FAERS Safety Report 5070554-3 (Version None)
Quarter: 2006Q3

REPORT INFORMATION
  Report Type: 
  Country: None (occurrence: None)
  Receive Date: 20060804
  Receipt Date: 20060726
  Transmission Date: 20061208
  Serious: Yes (Hospitalization)
  Sender: FDA-Public Use
  Company Number: US-JNJFOC-20060705955

PATIENT
  Sex: Female
  Weight: 19.05 kg

DRUGS (2)
  1. CHILDREN'S TYLENOL LIQUID DYE-FREE CHERRY [Suspect]
  2. CHILDREN'S TYLENOL LIQUID DYE-FREE CHERRY [Suspect]
     Indication: PYREXIA
     Dosage: 1 DOSE PER PACKAGE INSTRUCTIONS

REACTIONS (2)
  - PYREXIA [None]
  - VOMITING [None]
